FAERS Safety Report 6133816-4 (Version None)
Quarter: 2009Q1

REPORT INFORMATION
  Report Type: 
  Country: None (occurrence: None)
  Receive Date: 20090324
  Receipt Date: 20090225
  Transmission Date: 20090719
  Serious: Yes (Death)
  Sender: FDA-Public Use
  Company Number: MPS1-1000113

PATIENT
  Age: 5 Year

DRUGS (1)
  1. ALDURAZYME [Suspect]
     Indication: MUCOPOLYSACCHARIDOSIS I
     Dates: end: 20051121

REACTIONS (2)
  - BONE MARROW TRANSPLANT [None]
  - CARDIAC FAILURE [None]
